FAERS Safety Report 13130004 (Version 1)
Quarter: 2017Q1

REPORT INFORMATION
  Report Type: Spontaneous
  Country: US (occurrence: US)
  Receive Date: 20170118
  Receipt Date: 20170118
  Transmission Date: 20170428
  Serious: Yes (Death)
  Sender: FDA-Public Use
  Company Number: None

PATIENT
  Sex: Male

DRUGS (11)
  1. SUTENT [Suspect]
     Active Substance: SUNITINIB MALATE
     Indication: RENAL CANCER
     Route: 048
     Dates: start: 20161119
  2. HYDROCODONE [Concomitant]
     Active Substance: HYDROCODONE
  3. HCTZ [Concomitant]
     Active Substance: HYDROCHLOROTHIAZIDE
  4. SIMVASTATIN. [Concomitant]
     Active Substance: SIMVASTATIN
  5. NOVOLIN [Concomitant]
     Active Substance: INSULIN HUMAN
  6. FUROSEMIDE. [Concomitant]
     Active Substance: FUROSEMIDE
  7. LEVEMIR [Concomitant]
     Active Substance: INSULIN DETEMIR
  8. TRAMADOL. [Concomitant]
     Active Substance: TRAMADOL
  9. BENZONATATE. [Concomitant]
     Active Substance: BENZONATATE
  10. ASPIRIN. [Concomitant]
     Active Substance: ASPIRIN
  11. ONDANSETRON [Concomitant]
     Active Substance: ONDANSETRON

REACTIONS (1)
  - Death [None]
